FAERS Safety Report 8243613-1 (Version None)
Quarter: 2012Q1

REPORT INFORMATION
  Report Type: 
  Country: None (occurrence: None)
  Receive Date: 20120329
  Receipt Date: 20120322
  Transmission Date: 20120608
  Serious: Yes (Life-Threatening, Hospitalization)
  Sender: FDA-Public Use
  Company Number: US-BAYER-2011-067546

PATIENT
  Age: 25 Year
  Sex: Female
  Weight: 113 kg

DRUGS (6)
  1. CEFDINIR [Concomitant]
     Dosage: 300 MG, BID
  2. SYNTHROID [Concomitant]
     Indication: HYPOTHYROIDISM
     Dosage: 0.1 MG, QD
  3. YAZ [Suspect]
     Indication: CONTRACEPTION
     Dosage: UNK
     Route: 048
     Dates: start: 20090301, end: 20100401
  4. ADVAIR DISKUS 100/50 [Concomitant]
  5. SINGULAIR [Concomitant]
  6. ROCEPHIN [Concomitant]
     Indication: OTITIS MEDIA
     Dosage: 1 G, UNK
     Route: 030
     Dates: start: 20100302

REACTIONS (6)
  - PAIN [None]
  - EMOTIONAL DISTRESS [None]
  - PULMONARY EMBOLISM [None]
  - INJURY [None]
  - ANHEDONIA [None]
  - ANXIETY [None]
